FAERS Safety Report 23289064 (Version 1)
Quarter: 2023Q4

REPORT INFORMATION
  Report Type: Spontaneous
  Country: US (occurrence: None)
  Receive Date: 20231212
  Receipt Date: 20231212
  Transmission Date: 20240109
  Serious: Yes (Hospitalization)
  Sender: FDA-Public Use
  Company Number: None

PATIENT
  Sex: Female

DRUGS (1)
  1. SILIQ [Suspect]
     Active Substance: BRODALUMAB
     Indication: Psoriasis
     Dosage: OTHER QUANTITY : 210 MG/1.5ML;?FREQUENCY: EVERY 2 WEEKS?
     Route: 058
     Dates: start: 20230913

REACTIONS (2)
  - Pancreatitis [None]
  - Therapy interrupted [None]
